FAERS Safety Report 5526726-4 (Version None)
Quarter: 2007Q4

REPORT INFORMATION
  Report Type: 
  Country: None (occurrence: None)
  Receive Date: 20071127
  Receipt Date: 20071116
  Transmission Date: 20080405
  Serious: Yes (Life-Threatening)
  Sender: FDA-Public Use
  Company Number: GB-SOLVAY-00307035079

PATIENT
  Age: 43 Year
  Sex: Male

DRUGS (4)
  1. TESTOSTERONE [Suspect]
     Indication: ILL-DEFINED DISORDER
     Dosage: DAILY DOSE:  UNKNOWN
     Route: 065
  2. NANDROLONE DECANOATE [Suspect]
     Indication: ILL-DEFINED DISORDER
     Dosage: DAILY DOSE:  UNKNOWN
     Route: 065
  3. STANOZOLOL [Suspect]
     Indication: ILL-DEFINED DISORDER
     Dosage: DAILY DOSE:  UNKNOWN
     Route: 065
  4. PRIMABOLIN [Suspect]
     Indication: ILL-DEFINED DISORDER
     Dosage: DAILY DOSE:  UNKNOWN
     Route: 065

REACTIONS (5)
  - ABDOMINAL PAIN UPPER [None]
  - CIRCULATORY COLLAPSE [None]
  - HEPATIC ADENOMA [None]
  - RENAL FAILURE ACUTE [None]
  - SEPSIS [None]
